FAERS Safety Report 17923650 (Version 1)
Quarter: 2020Q2

REPORT INFORMATION
  Report Type: Spontaneous
  Country: UZ (occurrence: UZ)
  Receive Date: 20200622
  Receipt Date: 20200622
  Transmission Date: 20200714
  Serious: Yes (Death, Other)
  Sender: FDA-Public Use
  Company Number: UZ-JNJFOC-20200615593

PATIENT
  Age: 76 Year
  Sex: Male
  Weight: 35 kg

DRUGS (4)
  1. BEDAQUILINE [Suspect]
     Active Substance: BEDAQUILINE
     Indication: TUBERCULOSIS
     Route: 048
     Dates: start: 20190604
  2. MOXIFLOXACIN. [Suspect]
     Active Substance: MOXIFLOXACIN
     Indication: TUBERCULOSIS
     Dates: start: 20190604
  3. CLOFAZIMINE [Suspect]
     Active Substance: CLOFAZIMINE
     Indication: TUBERCULOSIS
     Dates: start: 20190604
  4. CYCLOSERINE. [Suspect]
     Active Substance: CYCLOSERINE
     Indication: TUBERCULOSIS
     Dates: start: 20190604

REACTIONS (8)
  - Condition aggravated [Unknown]
  - Electrocardiogram QT prolonged [Unknown]
  - Anaemia [Unknown]
  - Weight decreased [Unknown]
  - Asthenia [Unknown]
  - Bradycardia [Unknown]
  - Dyspnoea [Unknown]
  - Death [Fatal]

NARRATIVE: CASE EVENT DATE: 20190708
